FAERS Safety Report 14956376 (Version 1)
Quarter: 2018Q2

REPORT INFORMATION
  Report Type: Spontaneous
  Country: FR (occurrence: FR)
  Receive Date: 20180531
  Receipt Date: 20180531
  Transmission Date: 20180711
  Serious: Yes (Other)
  Sender: FDA-Public Use
  Company Number: FR-MERCK KGAA-2048772

PATIENT
  Age: 48 Year
  Sex: Female
  Weight: 54 kg

DRUGS (1)
  1. NOVOTHYROX [Suspect]
     Active Substance: LEVOTHYROXINE SODIUM
     Indication: POST PROCEDURAL HYPOTHYROIDISM
     Dates: start: 201705

REACTIONS (42)
  - Urinary tract infection [Recovering/Resolving]
  - Social avoidant behaviour [Recovering/Resolving]
  - Fat tissue increased [Recovering/Resolving]
  - Musculoskeletal pain [Recovering/Resolving]
  - Dry mouth [Recovering/Resolving]
  - Fatigue [Recovering/Resolving]
  - Asthenia [Recovering/Resolving]
  - Hypothyroidism [Recovering/Resolving]
  - Initial insomnia [Recovering/Resolving]
  - Disturbance in attention [Recovering/Resolving]
  - Thyroxine increased [Recovering/Resolving]
  - Irritability [Recovering/Resolving]
  - Headache [Recovering/Resolving]
  - Muscle mass [Recovering/Resolving]
  - Extrasystoles [Recovering/Resolving]
  - Aphasia [Recovering/Resolving]
  - Arthralgia [Recovering/Resolving]
  - Madarosis [Recovering/Resolving]
  - Hyperthyroidism [Recovering/Resolving]
  - Thirst [Recovering/Resolving]
  - Vertigo [Recovering/Resolving]
  - Muscle spasms [Recovering/Resolving]
  - Loss of personal independence in daily activities [Recovering/Resolving]
  - Angina pectoris [Recovering/Resolving]
  - Abdominal pain upper [Recovering/Resolving]
  - Loss of libido [Recovering/Resolving]
  - Dyspnoea [Recovering/Resolving]
  - Anxiety [Recovering/Resolving]
  - Diarrhoea [Recovering/Resolving]
  - Sleep disorder [Recovering/Resolving]
  - Amnesia [Recovering/Resolving]
  - Tension [Recovering/Resolving]
  - Pollakiuria [Recovering/Resolving]
  - Faeces soft [Recovering/Resolving]
  - Migraine with aura [Recovering/Resolving]
  - Ill-defined disorder [Recovering/Resolving]
  - Nausea [Recovering/Resolving]
  - Vision blurred [Recovering/Resolving]
  - Paraesthesia [Recovering/Resolving]
  - Confusional state [Recovering/Resolving]
  - Impatience [Recovering/Resolving]
  - Alopecia [Recovering/Resolving]

NARRATIVE: CASE EVENT DATE: 2017
